FAERS Safety Report 5383164-5 (Version None)
Quarter: 2007Q3

REPORT INFORMATION
  Report Type: 
  Country: None (occurrence: None)
  Receive Date: 20070705
  Receipt Date: 20070620
  Transmission Date: 20080115
  Serious: Yes (Hospitalization)
  Sender: FDA-Public Use
  Company Number: S07-FRA-02777-01

PATIENT
  Age: 92 Year
  Sex: Female

DRUGS (10)
  1. SEROPRAM SOLUTION (CITALOPRAM HYDROBROMIDE) [Suspect]
     Dosage: 15 DROPS QD PO
     Route: 048
     Dates: start: 20030101
  2. LEXOMIL BROMAZEPAM) [Suspect]
     Dosage: 0.5 QD PO
     Route: 048
     Dates: start: 20030101
  3. ACETAMINOPHEN W/ PROPOXYPHENE HCL [Suspect]
     Dosage: 2 TID PO
     Route: 048
     Dates: start: 20030101, end: 20070403
  4. ALDACTONE [Concomitant]
  5. LASIX [Concomitant]
  6. CORDARONE [Concomitant]
  7. PLAVIX [Concomitant]
  8. FERROUS SULFATE TAB [Concomitant]
  9. VOLTAREN [Concomitant]
  10. RESOURCE ENERGY [Concomitant]

REACTIONS (6)
  - ANOREXIA [None]
  - ASTHENIA [None]
  - FALL [None]
  - ORTHOSTATIC HYPOTENSION [None]
  - RENAL FAILURE [None]
  - SOMNOLENCE [None]
